FAERS Safety Report 8355909 (Version 2)
Quarter: 2012Q4

REPORT INFORMATION
  Report Type: 
  Country: BE (occurrence: BE)
  Receive Date: 20120126
  Receipt Date: 20121112
  Transmission Date: 20130627
  Serious: Yes (Hospitalization)
  Sender: FDA-Public Use
  Company Number: PHHO2012BE001066

PATIENT
  Age: 51 Year
  Sex: Female
  Weight: 62 kg

DRUGS (8)
  1. CGP 57148B [Suspect]
     Indication: PULMONARY ARTERIAL HYPERTENSION
     Dosage: 400 mg, QD
     Route: 048
     Dates: start: 20111111, end: 20120112
  2. TRACLEER [Concomitant]
     Indication: PULMONARY ARTERIAL HYPERTENSION
     Dosage: 125 mg, BID
  3. MARCOUMAR [Concomitant]
     Indication: PULMONARY ARTERIAL HYPERTENSION
     Dosage: UNK
  4. BURINEX [Concomitant]
     Indication: PULMONARY ARTERIAL HYPERTENSION
     Dosage: 2 mg, UNK
  5. ALDACTONE [Concomitant]
     Indication: PULMONARY ARTERIAL HYPERTENSION
     Dosage: 50 mg, UNK
  6. LANITOP [Concomitant]
     Dosage: 0.1 mg, UNK
  7. ELTHYRONE [Concomitant]
     Indication: HYPOTHYROIDISM
     Dosage: 100 mg, UNK
  8. REVALID [Concomitant]
     Indication: PULMONARY ARTERIAL HYPERTENSION
     Dosage: 20 mg, TID

REACTIONS (2)
  - Mesenteric panniculitis [Not Recovered/Not Resolved]
  - Gastroenteritis [Not Recovered/Not Resolved]
